FAERS Safety Report 19710776 (Version 4)
Quarter: 2021Q4

REPORT INFORMATION
  Report Type: Report from Study
  Country: IN (occurrence: IN)
  Receive Date: 20210816
  Receipt Date: 20211124
  Transmission Date: 20220303
  Serious: Yes (Hospitalization)
  Sender: FDA-Public Use
  Company Number: IN-PFIZER INC-202101008437

PATIENT
  Age: 71 Year
  Sex: Male
  Weight: 64 kg

DRUGS (10)
  1. DACOMITINIB [Suspect]
     Active Substance: DACOMITINIB
     Indication: Non-small cell lung cancer
     Dosage: 45 MG, 1X/DAY
     Route: 048
     Dates: start: 20210708, end: 20210805
  2. REVELOL-XL [Concomitant]
     Indication: Hypertension
     Dosage: 25 MG, 2X/DAY
     Route: 048
     Dates: start: 20200303, end: 20210805
  3. GLIMISAVE MV [Concomitant]
     Indication: Diabetes mellitus
     Dosage: 2.3 MG, 1X/DAY
     Route: 048
     Dates: start: 20200303, end: 20210805
  4. BENGREAT [Concomitant]
     Indication: Hypertension
     Dosage: 4 MG, 2X/DAY
     Route: 048
     Dates: start: 20200303
  5. AZTOR ASP [Concomitant]
     Indication: Prophylaxis
     Dosage: 150 MG, 1X/DAY
     Route: 048
     Dates: start: 20200303
  6. SOBISIS [Concomitant]
     Indication: Antacid therapy
     Dosage: 500 MG, 3X/DAY
     Route: 048
     Dates: start: 20200303, end: 20210806
  7. SILOCAP D [Concomitant]
     Indication: Urinary tract disorder
     Dosage: 8 MG, 1X/DAY
     Route: 048
     Dates: start: 20200303
  8. BIZFER XT [Concomitant]
     Indication: Vitamin supplementation
     Dosage: 60 MG, 1X/DAY
     Route: 048
     Dates: start: 20200303
  9. ACILOC-RD [DOMPERIDONE;OMEPRAZOLE MAGNESIUM] [Concomitant]
     Indication: Gastrooesophageal reflux disease
     Dosage: 20 MG, 2X/DAY
     Route: 048
     Dates: start: 20210801
  10. ONDANSETRON [Concomitant]
     Active Substance: ONDANSETRON
     Indication: Antiemetic supportive care
     Dosage: 8 MG, 3X/DAY
     Route: 048
     Dates: start: 20210801

REACTIONS (1)
  - Acute kidney injury [Recovered/Resolved]

NARRATIVE: CASE EVENT DATE: 20210804
